FAERS Safety Report 7948709-7 (Version None)
Quarter: 2011Q4

REPORT INFORMATION
  Report Type: 
  Country: None (occurrence: None)
  Receive Date: 20111130
  Receipt Date: 20111130
  Transmission Date: 20120403
  Serious: Yes (Death, Life-Threatening, Hospitalization, Disabling, Congenital Anomaly, Other)
  Sender: FDA-Public Use
  Company Number: None

PATIENT
  Age: 39 Year
  Sex: Female
  Weight: 61.688 kg

DRUGS (1)
  1. ZYRTEC [Suspect]
     Indication: MULTIPLE ALLERGIES
     Dosage: 20 MG
     Route: 048
     Dates: start: 19980101, end: 20111122

REACTIONS (16)
  - BLOOD UREA INCREASED [None]
  - BURNING SENSATION [None]
  - BLOOD CREATININE INCREASED [None]
  - BLOOD POTASSIUM INCREASED [None]
  - SOMNOLENCE [None]
  - DRUG WITHDRAWAL SYNDROME [None]
  - ASPARTATE AMINOTRANSFERASE INCREASED [None]
  - PRURITUS [None]
  - ALANINE AMINOTRANSFERASE INCREASED [None]
  - VITAMIN B12 INCREASED [None]
  - RASH [None]
  - ERYTHEMA [None]
  - RENAL IMPAIRMENT [None]
  - MEMORY IMPAIRMENT [None]
  - INSOMNIA [None]
  - PAIN [None]
